FAERS Safety Report 24103459 (Version 2)
Quarter: 2024Q4

REPORT INFORMATION
  Report Type: Spontaneous
  Country: CZ (occurrence: CZ)
  Receive Date: 20240717
  Receipt Date: 20241021
  Transmission Date: 20250114
  Serious: Yes (Hospitalization, Other)
  Sender: CELLTRION
  Company Number: CZ-CELLTRION INC.-2024CZ016924

PATIENT

DRUGS (13)
  1. ADALIMUMAB [Suspect]
     Active Substance: ADALIMUMAB
     Indication: Rheumatoid arthritis
     Dosage: 25 MG, QWEEK
     Route: 065
  2. ADALIMUMAB [Suspect]
     Active Substance: ADALIMUMAB
     Dosage: UNK
     Dates: start: 201909, end: 201909
  3. PREDNISONE [Suspect]
     Active Substance: PREDNISONE
     Indication: Rheumatoid arthritis
     Dosage: AVERAGE DOSE, REDUCING THE CORTICOSTEROID DOSE UNTIL COMPLETE DISCONTINUATION/ 10 MG, EVERY 1 DAY
     Route: 065
     Dates: end: 202008
  4. PREDNISONE [Suspect]
     Active Substance: PREDNISONE
     Dosage: 8 MG, EVERY 1 DAY
  5. PREDNISONE [Suspect]
     Active Substance: PREDNISONE
     Dosage: GRADUAL DETRACTION DURING THE NEXT 6 MONTHS./ 8 MG, EVERY 1 DAY
     Dates: start: 202011, end: 202104
  6. PREDNISONE [Suspect]
     Active Substance: PREDNISONE
     Dosage: UNK
  7. METHOTREXATE [Suspect]
     Active Substance: METHOTREXATE
     Indication: Rheumatoid arthritis
     Dosage: 15 MG, EVERY 1 WEEK
     Route: 065
     Dates: start: 201510
  8. METHOTREXATE [Suspect]
     Active Substance: METHOTREXATE
     Dosage: 10 MG, EVERY 1 WEEK
     Route: 065
  9. METHOTREXATE [Suspect]
     Active Substance: METHOTREXATE
     Dosage: 10 MG, EVERY 1 WEEK
  10. ETANERCEPT [Suspect]
     Active Substance: ETANERCEPT
     Indication: Rheumatoid arthritis
     Dosage: 25 MG, QWEEK
     Route: 065
     Dates: start: 201910, end: 202011
  11. HYDROXYCHLOROQUINE [Suspect]
     Active Substance: HYDROXYCHLOROQUINE
     Indication: Rheumatoid arthritis
     Dosage: 200 MG, EVERY 1 DAY
  12. SULFASALAZINE [Suspect]
     Active Substance: SULFASALAZINE
     Indication: Rheumatoid arthritis
     Dosage: 2 G, EVERY 1 DAY
  13. UPADACITINIB [Suspect]
     Active Substance: UPADACITINIB
     Indication: Rheumatoid arthritis
     Dosage: 15 MG, EVERY 1 DAY
     Dates: start: 202108

REACTIONS (8)
  - Rheumatoid arthritis [Recovering/Resolving]
  - Joint injury [Unknown]
  - Pulmonary sarcoidosis [Unknown]
  - Dermatitis allergic [Unknown]
  - Infection [Unknown]
  - Herpes zoster [Unknown]
  - Drug ineffective [Unknown]
  - Product use in unapproved indication [Unknown]

NARRATIVE: CASE EVENT DATE: 20230301
